FAERS Safety Report 13192464 (Version 1)
Quarter: 2017Q1

REPORT INFORMATION
  Report Type: Spontaneous
  Country: US (occurrence: US)
  Receive Date: 20161214
  Receipt Date: 20161214
  Transmission Date: 20170428
  Serious: Yes (Hospitalization)
  Sender: FDA-Public Use
  Company Number: None

PATIENT
  Age: 77 Year
  Sex: Male
  Weight: 63.3 kg

DRUGS (14)
  1. OXYCODONE [Concomitant]
     Active Substance: OXYCODONE
  2. GLYBURIDE. [Concomitant]
     Active Substance: GLYBURIDE
  3. AMLODIPINE [Concomitant]
     Active Substance: AMLODIPINE BESYLATE
  4. ASPIRIN. [Concomitant]
     Active Substance: ASPIRIN
  5. LANOXIN [Concomitant]
     Active Substance: DIGOXIN
  6. PRILOSEC [Concomitant]
     Active Substance: OMEPRAZOLE MAGNESIUM
  7. ZOCOR [Concomitant]
     Active Substance: SIMVASTATIN
  8. ABRAXANE [Suspect]
     Active Substance: PACLITAXEL
     Indication: PANCREATIC CARCINOMA
     Route: 042
     Dates: start: 20161116, end: 20161130
  9. LASIX [Concomitant]
     Active Substance: FUROSEMIDE
  10. LISINOPRIL. [Concomitant]
     Active Substance: LISINOPRIL
  11. ZOFRAN [Concomitant]
     Active Substance: ONDANSETRON HYDROCHLORIDE
  12. TYLENOL [Concomitant]
     Active Substance: ACETAMINOPHEN
  13. COMPAZINE [Concomitant]
     Active Substance: PROCHLORPERAZINE MALEATE
  14. COUMADIN [Concomitant]
     Active Substance: WARFARIN SODIUM

REACTIONS (5)
  - Asthenia [None]
  - Polydipsia [None]
  - Polyuria [None]
  - Pancreatic carcinoma [None]
  - Hyperglycaemia [None]

NARRATIVE: CASE EVENT DATE: 20161202
